FAERS Safety Report 14787031 (Version 2)
Quarter: 2018Q2

REPORT INFORMATION
  Report Type: Report from Study
  Country: FR (occurrence: FR)
  Receive Date: 20180420
  Receipt Date: 20180504
  Transmission Date: 20180711
  Serious: Yes (Other)
  Sender: FDA-Public Use
  Company Number: FR-CONCORDIA PHARMACEUTICALS INC.-E2B_00011158

PATIENT
  Sex: Male

DRUGS (23)
  1. DAUNORUBICIN [Suspect]
     Active Substance: DAUNORUBICIN
     Indication: ACUTE LYMPHOCYTIC LEUKAEMIA
     Dosage: 46 MG, UNK
     Route: 065
     Dates: start: 20170210, end: 20170218
  2. ONDANSETRON [Concomitant]
     Active Substance: ONDANSETRON
     Indication: PROPHYLAXIS OF NAUSEA AND VOMITING
  3. MESNA. [Concomitant]
     Active Substance: MESNA
     Indication: HAEMORRHAGE PROPHYLAXIS
  4. PEGASPARGASE [Suspect]
     Active Substance: PEGASPARGASE
     Indication: ACUTE LYMPHOCYTIC LEUKAEMIA
     Dosage: 1950 IU, UNK
     Route: 065
     Dates: start: 20170214
  5. PEGASPARGASE [Suspect]
     Active Substance: PEGASPARGASE
     Dosage: 1875 IU, UNK
     Route: 065
     Dates: start: 20170228
  6. ALIZAPRIDE [Concomitant]
     Active Substance: ALIZAPRIDE
     Indication: PROPHYLAXIS OF NAUSEA AND VOMITING
  7. KETAMINE HYDROCHLORIDE. [Concomitant]
     Active Substance: KETAMINE HYDROCHLORIDE
     Indication: SEDATIVE THERAPY
  8. DAUNORUBICIN [Suspect]
     Active Substance: DAUNORUBICIN
     Dosage: 45 MG, UNK
     Route: 065
     Dates: start: 20170224, end: 20170303
  9. SULFAMETHOXAZOLE AND TRIMETHOPRIM [Concomitant]
     Active Substance: SULFAMETHOXAZOLE\TRIMETHOPRIM
     Indication: ANTIFUNGAL PROPHYLAXIS
  10. VINCRISTINE [Suspect]
     Active Substance: VINCRISTINE
     Indication: ACUTE LYMPHOCYTIC LEUKAEMIA
     Dosage: 2 MG, UNK
     Route: 065
     Dates: start: 20170210, end: 20170303
  11. HYDROCORTISONE. [Suspect]
     Active Substance: HYDROCORTISONE
     Indication: ACUTE LYMPHOCYTIC LEUKAEMIA
     Dosage: 15 MG, UNK
     Route: 037
     Dates: start: 20170215, end: 20170226
  12. CYTARABINE. [Suspect]
     Active Substance: CYTARABINE
     Indication: ACUTE LYMPHOCYTIC LEUKAEMIA
     Dosage: 30 MG, UNK
     Route: 037
     Dates: start: 20170215, end: 20170226
  13. CALCIUM CARBONATE. [Concomitant]
     Active Substance: CALCIUM CARBONATE
     Indication: VITAMIN SUPPLEMENTATION
  14. ALGINATE DE SODIUM/BICARBONATE DE SODIUM [Concomitant]
     Indication: DYSPEPSIA
  15. HYDROXYZINE [Concomitant]
     Active Substance: HYDROXYZINE HYDROCHLORIDE
     Indication: ANXIOLYTIC THERAPY
  16. METHYLPREDNISOLONE. [Suspect]
     Active Substance: METHYLPREDNISOLONE
     Indication: ACUTE LYMPHOCYTIC LEUKAEMIA
     Dosage: 2000 MG, UNK
     Route: 042
     Dates: start: 20170210, end: 20170302
  17. BACTRIM [Suspect]
     Active Substance: SULFAMETHOXAZOLE\TRIMETHOPRIM
     Indication: PRODUCT USED FOR UNKNOWN INDICATION
     Dosage: 800 MG, 3X A WEEK
     Route: 048
     Dates: start: 20170307, end: 20170310
  18. ENOXAPARIN [Concomitant]
     Active Substance: ENOXAPARIN
     Indication: THROMBOSIS PROPHYLAXIS
  19. RASBURICASE [Concomitant]
     Active Substance: RASBURICASE
     Indication: TUMOUR LYSIS SYNDROME
  20. PREDNISOLONE. [Suspect]
     Active Substance: PREDNISOLONE
     Indication: ACUTE LYMPHOCYTIC LEUKAEMIA
     Dosage: 2000 MG, UNK
     Route: 042
     Dates: start: 20170210, end: 20170302
  21. METHOTREXATE. [Suspect]
     Active Substance: METHOTREXATE
     Indication: ACUTE LYMPHOCYTIC LEUKAEMIA
     Dosage: 15 MG, UNK
     Route: 037
     Dates: start: 20170215, end: 20170226
  22. MIDAZOLAM [Concomitant]
     Active Substance: MIDAZOLAM HYDROCHLORIDE
     Indication: SEDATIVE THERAPY
  23. ERGOCALCIFEROL. [Concomitant]
     Active Substance: ERGOCALCIFEROL
     Indication: VITAMIN SUPPLEMENTATION

REACTIONS (1)
  - Alanine aminotransferase increased [Not Recovered/Not Resolved]

NARRATIVE: CASE EVENT DATE: 20170314
